FAERS Safety Report 12449517 (Version 1)
Quarter: 2016Q2

REPORT INFORMATION
  Report Type: Spontaneous
  Country: US (occurrence: US)
  Receive Date: 20160608
  Receipt Date: 20160608
  Transmission Date: 20160815
  Serious: Yes (Hospitalization)
  Sender: FDA-Public Use
  Company Number: US-BIOGEN-2016BI00245968

PATIENT
  Sex: Male
  Weight: 99.88 kg

DRUGS (2)
  1. TECFIDERA [Suspect]
     Active Substance: DIMETHYL FUMARATE
     Indication: MULTIPLE SCLEROSIS
     Route: 048
  2. TECFIDERA [Suspect]
     Active Substance: DIMETHYL FUMARATE
     Route: 048

REACTIONS (5)
  - Headache [Recovered/Resolved]
  - Abdominal distension [Recovered/Resolved]
  - Blood pressure increased [Recovered/Resolved]
  - Central nervous system lesion [Recovered/Resolved]
  - Hemianaesthesia [Recovered/Resolved]
